FAERS Safety Report 16979142 (Version 2)
Quarter: 2019Q4

REPORT INFORMATION
  Report Type: Spontaneous
  Country: ES (occurrence: ES)
  Receive Date: 20191031
  Receipt Date: 20191107
  Transmission Date: 20200122
  Serious: Yes (Other)
  Sender: FDA-Public Use
  Company Number: ES-PFIZER INC-2019464447

PATIENT
  Age: 94 Year
  Sex: Female

DRUGS (12)
  1. PREGABALIN. [Interacting]
     Active Substance: PREGABALIN
     Dosage: 75 MG, DAILY
  2. CAPSAICIN. [Concomitant]
     Active Substance: CAPSAICIN
     Indication: ANAESTHESIA
     Dosage: UNK, 2X/DAY
     Route: 065
  3. PREGABALIN. [Interacting]
     Active Substance: PREGABALIN
     Dosage: 25 MG, DAILY
  4. MORPHINE SULFATE. [Interacting]
     Active Substance: MORPHINE SULFATE
     Dosage: 2.5 MG, 1X/DAY (AT NIGHT)
  5. VALACYCLOVIR [Suspect]
     Active Substance: VALACYCLOVIR HYDROCHLORIDE
     Dosage: UNK
  6. TRIGON [Concomitant]
     Active Substance: TRIAMCINOLONE ACETONIDE
     Indication: NERVE BLOCK
     Dosage: 5 MG, UNK
     Route: 065
  7. BUPIVACAINE. [Concomitant]
     Active Substance: BUPIVACAINE
     Indication: NERVE BLOCK
     Dosage: 0.25 % (0.25 PERCENT)
     Route: 065
  8. LIDOCAINE. [Suspect]
     Active Substance: LIDOCAINE
     Dosage: UNK, 1X/DAY (AT NIGHT)
     Route: 065
  9. DULOXETINE. [Concomitant]
     Active Substance: DULOXETINE
     Indication: ANAESTHESIA
     Dosage: 30 MG, UNK
     Route: 065
  10. PREGABALIN. [Interacting]
     Active Substance: PREGABALIN
     Dosage: 50 MG, DAILY
  11. EMLA [Concomitant]
     Active Substance: LIDOCAINE\PRILOCAINE
     Indication: ANAESTHESIA
     Dosage: UNK, 2X/DAY
     Route: 065
  12. PREGABALIN. [Suspect]
     Active Substance: PREGABALIN
     Dosage: 225 MG/DAY, (50 MG-0-175 MG)

REACTIONS (4)
  - Hallucination, visual [Unknown]
  - Drug interaction [Unknown]
  - Contraindicated product administered [Unknown]
  - Myoclonus [Unknown]
